FAERS Safety Report 6349467-2 (Version None)
Quarter: 2009Q3

REPORT INFORMATION
  Report Type: 
  Country: None (occurrence: None)
  Receive Date: 20090911
  Receipt Date: 20090831
  Transmission Date: 20100115
  Serious: Yes (Hospitalization)
  Sender: FDA-Public Use
  Company Number: PL-WYE-H10851009

PATIENT
  Age: 54 Year

DRUGS (4)
  1. AMIODARONE HCL [Suspect]
     Indication: PROPHYLAXIS
     Dosage: UNSPECIFIED
  2. AMIODARONE HCL [Suspect]
     Indication: ARRHYTHMIA
  3. BUPRANOLOL HYDROCHLORIDE [Suspect]
     Indication: PROPHYLAXIS
  4. BUPRANOLOL HYDROCHLORIDE [Suspect]
     Indication: ARRHYTHMIA

REACTIONS (2)
  - ATRIAL FLUTTER [None]
  - DRUG INEFFECTIVE [None]
